FAERS Safety Report 25139829 (Version 1)
Quarter: 2025Q1

REPORT INFORMATION
  Report Type: Spontaneous
  Country: US (occurrence: US)
  Receive Date: 20250331
  Receipt Date: 20250331
  Transmission Date: 20250408
  Serious: Yes (Life-Threatening, Other)
  Sender: BOEHRINGER INGELHEIM
  Company Number: US-BoehringerIngelheim-2025-BI-018211

PATIENT
  Age: 86 Year
  Sex: Female

DRUGS (2)
  1. DABIGATRAN [Suspect]
     Active Substance: DABIGATRAN
     Indication: Cerebrovascular accident prophylaxis
  2. DABIGATRAN [Suspect]
     Active Substance: DABIGATRAN
     Indication: Atrial fibrillation

REACTIONS (7)
  - Mental status changes [Unknown]
  - Acute respiratory failure [Unknown]
  - Acute kidney injury [Recovered/Resolved]
  - Anaemia [Recovering/Resolving]
  - Activated partial thromboplastin time prolonged [Unknown]
  - Thrombin time prolonged [Unknown]
  - International normalised ratio increased [Unknown]
